FAERS Safety Report 8830817 (Version 3)
Quarter: 2013Q2

REPORT INFORMATION
  Report Type: Spontaneous
  Country: US (occurrence: US)
  Receive Date: 20121009
  Receipt Date: 20130417
  Transmission Date: 20140414
  Serious: No
  Sender: FDA-Public Use
  Company Number: US-PFIZER INC-2012246560

PATIENT
  Sex: Female
  Weight: 50.79 kg

DRUGS (1)
  1. EFFEXOR XR [Suspect]
     Dosage: 450 MG A DAY AT AN UNKNOWN DOSE AND FREQUENCY
     Route: 048
     Dates: end: 20120929

REACTIONS (7)
  - Off label use [Unknown]
  - Activities of daily living impaired [Unknown]
  - Tremor [Unknown]
  - Dysstasia [Unknown]
  - Headache [Unknown]
  - Arthralgia [Unknown]
  - Malaise [Unknown]
